FAERS Safety Report 19771949 (Version 2)
Quarter: 2021Q3

REPORT INFORMATION
  Report Type: Spontaneous
  Country: CN (occurrence: CN)
  Receive Date: 20210831
  Receipt Date: 20210831
  Transmission Date: 20211014
  Serious: Yes (Other)
  Sender: FDA-Public Use
  Company Number: CN-PFIZER INC-202101070403

PATIENT
  Age: 25 Year
  Sex: Female
  Weight: 75 kg

DRUGS (1)
  1. CARBOPROST TROMETAMOL [Suspect]
     Active Substance: CARBOPROST TROMETHAMINE
     Indication: POSTPARTUM HAEMORRHAGE
     Dosage: 250.0 UG, 1X/DAY
     Dates: start: 20210812, end: 20210812

REACTIONS (4)
  - Off label use [Unknown]
  - Abdominal pain lower [Recovering/Resolving]
  - Product use issue [Unknown]
  - Diarrhoea [Recovering/Resolving]

NARRATIVE: CASE EVENT DATE: 20210812
